FAERS Safety Report 25446404 (Version 2)
Quarter: 2025Q3

REPORT INFORMATION
  Report Type: Spontaneous
  Country: US (occurrence: US)
  Receive Date: 20250617
  Receipt Date: 20250730
  Transmission Date: 20251021
  Serious: Yes (Other)
  Sender: PFIZER
  Company Number: US-PFIZER INC-PV202300082737

PATIENT
  Age: 95 Year
  Sex: Female
  Weight: 25.5 kg

DRUGS (2)
  1. IBRANCE [Suspect]
     Active Substance: PALBOCICLIB
     Indication: Breast cancer female
     Route: 048
     Dates: start: 202301, end: 202503
  2. IBRANCE [Suspect]
     Active Substance: PALBOCICLIB
     Indication: Metastases to lymph nodes

REACTIONS (4)
  - Malignant neoplasm progression [Recovered/Resolved]
  - Breast cancer female [Recovered/Resolved]
  - Metastases to lymph nodes [Recovered/Resolved]
  - Urosepsis [Unknown]

NARRATIVE: CASE EVENT DATE: 20230101
